FAERS Safety Report 11358971 (Version 1)
Quarter: 2015Q3

REPORT INFORMATION
  Report Type: Report from Study
  Country: US (occurrence: US)
  Receive Date: 20150807
  Receipt Date: 20150807
  Transmission Date: 20151125
  Serious: Yes (Hospitalization)
  Sender: FDA-Public Use
  Company Number: US-GILEAD-2015-0165586AA

PATIENT
  Age: 64 Year
  Sex: Male

DRUGS (1)
  1. LEDIPASVIR/SOFOSBUVIR [Suspect]
     Active Substance: LEDIPASVIR\SOFOSBUVIR
     Indication: CHRONIC HEPATITIS C
     Dosage: 1 DF, QD
     Route: 048
     Dates: start: 20150703

REACTIONS (5)
  - Abdominal pain [Recovered/Resolved]
  - Wound haemorrhage [Recovered/Resolved]
  - Pyrexia [Recovered/Resolved]
  - Rectal haemorrhage [Unknown]
  - Head discomfort [Unknown]

NARRATIVE: CASE EVENT DATE: 201507
